FAERS Safety Report 9992982 (Version 1)
Quarter: 2014Q1

REPORT INFORMATION
  Report Type: Report from Study
  Country: US (occurrence: US)
  Receive Date: 20140310
  Receipt Date: 20140310
  Transmission Date: 20141002
  Serious: No
  Sender: FDA-Public Use
  Company Number: US-ABBVIE-13P-163-1168645-00

PATIENT
  Age: 35 Year
  Sex: Female

DRUGS (4)
  1. LUPRON DEPOT [Suspect]
     Indication: ENDOMETRIOSIS
     Route: 030
     Dates: start: 20131003
  2. NORETHINDRONE [Concomitant]
     Indication: ENDOMETRIOSIS
     Route: 048
  3. IMITREX [Concomitant]
     Indication: MIGRAINE
     Route: 048
  4. NEXIUM [Concomitant]
     Indication: DYSPEPSIA
     Route: 048

REACTIONS (2)
  - Abdominal pain [Not Recovered/Not Resolved]
  - Vaginal haemorrhage [Not Recovered/Not Resolved]
